FAERS Safety Report 6309393-1 (Version None)
Quarter: 2009Q3

REPORT INFORMATION
  Report Type: 
  Country: None (occurrence: None)
  Receive Date: 20090814
  Receipt Date: 20090805
  Transmission Date: 20100115
  Serious: Yes (Hospitalization, Other)
  Sender: FDA-Public Use
  Company Number: PL-ROCHE-648601

PATIENT
  Age: 70 Year
  Sex: Female
  Weight: 60 kg

DRUGS (2)
  1. BONIVA [Suspect]
     Indication: OSTEOPOROSIS
     Dosage: DOSE UNSPECIFIED. STOP DATE REPORTED AS MAY 2009.
     Route: 048
     Dates: start: 20090501
  2. ANTIHYPERTENSIVE NOS [Concomitant]
     Dosage: DRUG REPORTED AS CARDIOLOGICAL DRUGS NOS.

REACTIONS (6)
  - ABDOMINAL PAIN UPPER [None]
  - ASTHENIA [None]
  - CONSTIPATION [None]
  - DECREASED APPETITE [None]
  - LYMPHOCYTOSIS [None]
  - SYNCOPE [None]
